FAERS Safety Report 5278503-X (Version None)
Quarter: 2007Q1

REPORT INFORMATION
  Report Type: 
  Country: None (occurrence: None)
  Receive Date: 20070322
  Receipt Date: 20070309
  Transmission Date: 20070707
  Serious: Yes (Other)
  Sender: FDA-Public Use
  Company Number: 238040

PATIENT
  Age: 53 Year
  Sex: Female
  Weight: 99.8 kg

DRUGS (2)
  1. AVASTIN [Suspect]
     Indication: MACULAR DEGENERATION
     Dosage: 1.25 MG, QD, INTRAVITREAL
     Dates: start: 20060927, end: 20060927
  2. VISUDYNE [Suspect]
     Indication: MACULAR DEGENERATION
     Dates: start: 20060719, end: 20060719

REACTIONS (2)
  - IRITIS [None]
  - VISUAL ACUITY REDUCED [None]
